FAERS Safety Report 12395044 (Version 1)
Quarter: 2016Q2

REPORT INFORMATION
  Report Type: Spontaneous
  Country: US (occurrence: US)
  Receive Date: 20160523
  Receipt Date: 20160523
  Transmission Date: 20160815
  Serious: No
  Sender: FDA-Public Use
  Company Number: US-ALLERGAN-1637430US

PATIENT
  Sex: Female

DRUGS (1)
  1. KYBELLA [Suspect]
     Active Substance: DEOXYCHOLIC ACID
     Indication: PRODUCT USED FOR UNKNOWN INDICATION
     Dosage: UNK, SINGLE
     Route: 058
     Dates: start: 20160209, end: 20160209

REACTIONS (9)
  - Hypertension [Not Recovered/Not Resolved]
  - Injection site pain [Recovered/Resolved]
  - Cutis laxa [Not Recovered/Not Resolved]
  - Discomfort [Recovered/Resolved]
  - Swelling [Recovered/Resolved]
  - Drug ineffective [Unknown]
  - Injection site haemorrhage [Recovered/Resolved]
  - Contusion [Recovered/Resolved]
  - Hypoaesthesia [Recovered/Resolved]
